FAERS Safety Report 7250061-X (Version None)
Quarter: 2011Q1

REPORT INFORMATION
  Report Type: 
  Country: None (occurrence: None)
  Receive Date: 20110128
  Receipt Date: 20110105
  Transmission Date: 20110831
  Serious: Yes (Hospitalization, Other)
  Sender: FDA-Public Use
  Company Number: BR-BAYER-2010-006569

PATIENT
  Sex: Female

DRUGS (3)
  1. CALCIUM [Concomitant]
     Indication: PRODUCT USED FOR UNKNOWN INDICATION
     Dosage: 2 DF, QD
     Route: 048
     Dates: start: 20090101
  2. BETAFERON [Suspect]
     Indication: MULTIPLE SCLEROSIS
     Dosage: 0.75 ML, QOD
     Route: 058
     Dates: start: 20101201
  3. BACLOFEN [Concomitant]
     Indication: BALANCE DISORDER
     Dosage: 2 DF, TID
     Route: 048
     Dates: start: 20100901

REACTIONS (6)
  - CHEST PAIN [None]
  - SPEECH DISORDER [None]
  - DYSPHAGIA [None]
  - HEADACHE [None]
  - DYSPNOEA [None]
  - BACK PAIN [None]
